FAERS Safety Report 14241893 (Version 3)
Quarter: 2018Q2

REPORT INFORMATION
  Report Type: Spontaneous
  Country: CA (occurrence: CA)
  Receive Date: 20171201
  Receipt Date: 20180526
  Transmission Date: 20180711
  Serious: Yes (Other)
  Sender: FDA-Public Use
  Company Number: CA-CONCORDIA PHARMACEUTICALS INC.-GSH201711-006534

PATIENT
  Age: 41 Year
  Sex: Female

DRUGS (11)
  1. AMITRIPTYLINE [Suspect]
     Active Substance: AMITRIPTYLINE
     Indication: PRODUCT USED FOR UNKNOWN INDICATION
     Route: 065
  2. SULPHASALAZINE [Suspect]
     Active Substance: SULFASALAZINE
     Indication: PRODUCT USED FOR UNKNOWN INDICATION
     Route: 065
  3. FOLIC ACID. [Concomitant]
     Active Substance: FOLIC ACID
  4. METHOTREXATE. [Concomitant]
     Active Substance: METHOTREXATE
  5. PLAQUENIL [Suspect]
     Active Substance: HYDROXYCHLOROQUINE SULFATE
     Indication: PRODUCT USED FOR UNKNOWN INDICATION
     Route: 048
  6. PANTOPRAZOLE [Concomitant]
     Active Substance: PANTOPRAZOLE
  7. HUMIRA [Suspect]
     Active Substance: ADALIMUMAB
     Indication: PRODUCT USED FOR UNKNOWN INDICATION
     Route: 058
  8. HYDROXYCHLOROQUINE [Suspect]
     Active Substance: HYDROXYCHLOROQUINE
     Indication: PRODUCT USED FOR UNKNOWN INDICATION
     Route: 048
  9. MELOXICAM. [Suspect]
     Active Substance: MELOXICAM
     Indication: PRODUCT USED FOR UNKNOWN INDICATION
     Route: 065
  10. ENBREL [Suspect]
     Active Substance: ETANERCEPT
     Indication: ANKYLOSING SPONDYLITIS
     Route: 065
     Dates: end: 20160610
  11. NAPROXEN. [Concomitant]
     Active Substance: NAPROXEN

REACTIONS (23)
  - HLA marker study positive [Unknown]
  - Arthralgia [Recovering/Resolving]
  - Joint swelling [Recovering/Resolving]
  - Musculoskeletal discomfort [Unknown]
  - Drug ineffective [Unknown]
  - Musculoskeletal stiffness [Unknown]
  - Laboratory test abnormal [Recovering/Resolving]
  - Chest pain [Recovering/Resolving]
  - Immunodeficiency [Unknown]
  - Spinal osteoarthritis [Recovering/Resolving]
  - Chest pain [Unknown]
  - Spinal X-ray abnormal [Recovering/Resolving]
  - Ankylosing spondylitis [Unknown]
  - Arthritis [Recovering/Resolving]
  - Musculoskeletal stiffness [Recovering/Resolving]
  - Myofascial pain syndrome [Recovering/Resolving]
  - Somnolence [Unknown]
  - Fibromyalgia [Recovering/Resolving]
  - Kyphoscoliosis [Unknown]
  - Plantar fasciitis [Recovering/Resolving]
  - Drug effect incomplete [Unknown]
  - Bone pain [Recovering/Resolving]
  - Treatment failure [Unknown]
